FAERS Safety Report 12784615 (Version 1)
Quarter: 2016Q3

REPORT INFORMATION
  Report Type: Spontaneous
  Country: BR (occurrence: BR)
  Receive Date: 20160927
  Receipt Date: 20160927
  Transmission Date: 20161109
  Serious: Yes (Other)
  Sender: FDA-Public Use
  Company Number: PHHY2016BR130750

PATIENT
  Age: 22 Year
  Sex: Female

DRUGS (1)
  1. DESOGESTREL SANDOZ [Suspect]
     Active Substance: DESOGESTREL
     Indication: ORAL CONTRACEPTION
     Dosage: 75 UG, QD
     Route: 048
     Dates: start: 20160920

REACTIONS (5)
  - Fatigue [Unknown]
  - Pain in extremity [Unknown]
  - Muscle spasms [Unknown]
  - Peripheral swelling [Unknown]
  - Feeling abnormal [Unknown]
